FAERS Safety Report 8618661-X (Version None)
Quarter: 2012Q3

REPORT INFORMATION
  Report Type: 
  Country: None (occurrence: None)
  Receive Date: 20120824
  Receipt Date: 20120816
  Transmission Date: 20120928
  Serious: Yes (Other)
  Sender: FDA-Public Use
  Company Number: US-GE HEALTHCARE MEDICAL DIAGNOSTICS-OMPQ-PR-1208S-0867

PATIENT
  Age: 56 Year
  Sex: Male

DRUGS (2)
  1. OMNIPAQUE 140 [Suspect]
     Indication: PRODUCT USED FOR UNKNOWN INDICATION
     Route: 042
     Dates: start: 20120730, end: 20120730
  2. OMNIPAQUE 140 [Suspect]
     Indication: DIAGNOSTIC PROCEDURE

REACTIONS (7)
  - AIR EMBOLISM [None]
  - NAUSEA [None]
  - DIZZINESS [None]
  - FATIGUE [None]
  - HAEMOPTYSIS [None]
  - HEADACHE [None]
  - VOMITING [None]
